FAERS Safety Report 12960105 (Version 1)
Quarter: 2016Q4

REPORT INFORMATION
  Report Type: Spontaneous
  Country: US (occurrence: US)
  Receive Date: 20161121
  Receipt Date: 20161121
  Transmission Date: 20170207
  Serious: Yes (Other)
  Sender: FDA-Public Use
  Company Number: US-SAGENTPRD-2016-US-000057

PATIENT
  Age: 1 Year
  Sex: Male

DRUGS (2)
  1. OCTREOTIDE ACETATE INJECTION [Suspect]
     Active Substance: OCTREOTIDE ACETATE
     Dosage: 26 TO 36 MCG/DAY
  2. NO DRUG NAME [Concomitant]
     Dosage: 0.5 TO 6 MG/M2/DAY

REACTIONS (2)
  - Respiratory syncytial virus infection [Unknown]
  - Growth retardation [Unknown]
